FAERS Safety Report 23331888 (Version 1)
Quarter: 2023Q4

REPORT INFORMATION
  Report Type: Spontaneous
  Country: CO (occurrence: None)
  Receive Date: 20231222
  Receipt Date: 20231222
  Transmission Date: 20240110
  Serious: Yes (Death)
  Sender: FDA-Public Use
  Company Number: 2023A286171

PATIENT
  Age: 53 Year
  Sex: Female

DRUGS (1)
  1. OSIMERTINIB [Suspect]
     Active Substance: OSIMERTINIB
     Indication: Non-small cell lung cancer
     Route: 048

REACTIONS (5)
  - Malignant neoplasm progression [Fatal]
  - Malignant transformation [Fatal]
  - Drug resistance [Fatal]
  - Acquired gene mutation [Fatal]
  - General physical health deterioration [Fatal]
